FAERS Safety Report 15190452 (Version 2)
Quarter: 2018Q4

REPORT INFORMATION
  Report Type: Report from Study
  Country: US (occurrence: US)
  Receive Date: 20180724
  Receipt Date: 20181030
  Transmission Date: 20190204
  Serious: Yes (Hospitalization, Other)
  Sender: FDA-Public Use
  Company Number: US-SA-2018SA199509

PATIENT
  Age: 46 Year
  Sex: Female

DRUGS (12)
  1. ALEMTUZUMAB [Suspect]
     Active Substance: ALEMTUZUMAB
     Dosage: UNK
     Route: 041
     Dates: start: 20151211, end: 20151211
  2. ALEMTUZUMAB [Suspect]
     Active Substance: ALEMTUZUMAB
     Dosage: 12 MG, QD
     Route: 041
     Dates: start: 20161205, end: 20161207
  3. TYLENOL [Concomitant]
     Active Substance: ACETAMINOPHEN
  4. DAPSONE. [Concomitant]
     Active Substance: DAPSONE
  5. POTASSIUM [Concomitant]
     Active Substance: POTASSIUM
  6. MILK OF MAGNESIA [Concomitant]
     Active Substance: MAGNESIUM HYDROXIDE
  7. PROZAC [Concomitant]
     Active Substance: FLUOXETINE HYDROCHLORIDE
  8. ALBUMIN [Concomitant]
     Active Substance: ALBUMIN HUMAN
  9. CALCIUM [Concomitant]
     Active Substance: CALCIUM
  10. NORVASC [Concomitant]
     Active Substance: AMLODIPINE BESYLATE
  11. EPOETIN ALFA [Concomitant]
     Active Substance: ERYTHROPOIETIN
  12. LABETALOL [Concomitant]
     Active Substance: LABETALOL\LABETALOL HYDROCHLORIDE

REACTIONS (13)
  - Urinary retention [Unknown]
  - Autoimmune disorder [Unknown]
  - Nuclear magnetic resonance imaging abnormal [Unknown]
  - Anti-glomerular basement membrane antibody [Unknown]
  - Dizziness [Unknown]
  - Nausea [Unknown]
  - Haemoptysis [Unknown]
  - Confusional state [Unknown]
  - Dyspnoea [Unknown]
  - Influenza like illness [Unknown]
  - Renal failure [Unknown]
  - Vomiting [Unknown]
  - Vertigo [Unknown]

NARRATIVE: CASE EVENT DATE: 2018
